FAERS Safety Report 7356238-7 (Version None)
Quarter: 2011Q1

REPORT INFORMATION
  Report Type: 
  Country: None (occurrence: None)
  Receive Date: 20110316
  Receipt Date: 20110307
  Transmission Date: 20110831
  Serious: Yes (Life-Threatening, Hospitalization)
  Sender: FDA-Public Use
  Company Number: JP-CELGENEUS-087-21880-10102310

PATIENT
  Sex: Male

DRUGS (13)
  1. REVLIMID [Suspect]
     Dosage: 25 MILLIGRAM
     Route: 048
     Dates: start: 20101105, end: 20101125
  2. LENADEX [Suspect]
     Indication: MULTIPLE MYELOMA
     Dosage: 4 MILLIGRAM
     Route: 048
     Dates: start: 20101008, end: 20101011
  3. OMEPRAL [Concomitant]
     Indication: PROPHYLAXIS
     Dosage: 10 MILLIGRAM
     Route: 048
     Dates: start: 20101008
  4. REVLIMID [Suspect]
     Dosage: 25 MILLIGRAM
     Route: 048
     Dates: start: 20101203, end: 20101211
  5. DECADRON [Concomitant]
     Dosage: 1 MILLIGRAM
     Route: 048
     Dates: start: 20101105, end: 20101111
  6. CRAVIT [Concomitant]
     Dosage: 500 MILLIGRAM
     Route: 048
     Dates: start: 20101021, end: 20101027
  7. REVLIMID [Suspect]
     Indication: MULTIPLE MYELOMA
     Dosage: 25 MILLIGRAM
     Route: 048
     Dates: start: 20101008, end: 20101028
  8. DECADRON [Concomitant]
     Dosage: 6 MILLIGRAM
     Route: 048
     Dates: start: 20101126, end: 20101211
  9. LENADEX [Suspect]
     Dosage: 4 MILLIGRAM
     Route: 048
     Dates: start: 20101112, end: 20101125
  10. LENADEX [Suspect]
     Dosage: 4 MILLIGRAM
     Route: 048
     Dates: start: 20101015, end: 20101021
  11. DECADRON [Concomitant]
     Indication: MULTIPLE MYELOMA
     Dosage: 2 MILLIGRAM
     Route: 048
     Dates: start: 20101022, end: 20101028
  12. ASPIRIN [Concomitant]
     Indication: PROPHYLAXIS
     Dosage: 100 MILLIGRAM
     Route: 048
     Dates: start: 20101008
  13. MYSLEE [Concomitant]
     Dosage: 5 MILLIGRAM
     Route: 048

REACTIONS (4)
  - DIABETES MELLITUS [None]
  - RASH [None]
  - PLATELET COUNT DECREASED [None]
  - LYMPHADENOPATHY [None]
